FAERS Safety Report 10694057 (Version 1)
Quarter: 2015Q1

REPORT INFORMATION
  Report Type: Spontaneous
  Country: SE (occurrence: SE)
  Receive Date: 20150106
  Receipt Date: 20150106
  Transmission Date: 20150721
  Serious: Yes (Hospitalization)
  Sender: FDA-Public Use
  Company Number: SE-009507513-1501SWE000129

PATIENT
  Age: 54 Year
  Sex: Male

DRUGS (6)
  1. ENALAPRIL MALEATE. [Suspect]
     Active Substance: ENALAPRIL MALEATE
     Dosage: 100 MG, ONCE
     Route: 048
     Dates: start: 20131220, end: 20131220
  2. SIMVASTATIN. [Suspect]
     Active Substance: SIMVASTATIN
     Dosage: 800 MG, ONCE
     Route: 048
     Dates: start: 20131220, end: 20131220
  3. JANUMET [Suspect]
     Active Substance: METFORMIN HYDROCHLORIDE\SITAGLIPTIN PHOSPHATE
     Dosage: 10 TABLETS 50/1000 MG
     Route: 048
     Dates: start: 20131220, end: 20131220
  4. TROMBYL [Suspect]
     Active Substance: ASPIRIN
     Dosage: 750 MG, ONCE
     Route: 048
     Dates: start: 20131220, end: 20131220
  5. METOPROLOL [Suspect]
     Active Substance: METOPROLOL
     Dosage: 1000 MG, ONCE
     Route: 048
     Dates: start: 20131220, end: 20131220
  6. SERTRALINE HYDROCHLORIDE. [Suspect]
     Active Substance: SERTRALINE HYDROCHLORIDE
     Dosage: 1000 MG, ONCE
     Route: 048
     Dates: start: 20131220, end: 20131220

REACTIONS (1)
  - Toxicity to various agents [Recovered/Resolved]

NARRATIVE: CASE EVENT DATE: 20131220
